FAERS Safety Report 6615287-4 (Version None)
Quarter: 2010Q1

REPORT INFORMATION
  Report Type: 
  Country: None (occurrence: None)
  Receive Date: 20100301
  Receipt Date: 20100218
  Transmission Date: 20100710
  Serious: Yes (Other)
  Sender: FDA-Public Use
  Company Number: ES-1180922

PATIENT
  Sex: Male

DRUGS (2)
  1. PATANOL [Suspect]
     Indication: FOREIGN BODY SENSATION IN EYES
     Dosage: OPHTHALMIC
     Route: 047
  2. VISCOFRESH (CARMELLOSE) [Concomitant]

REACTIONS (2)
  - EPISTAXIS [None]
  - NASAL DRYNESS [None]
